FAERS Safety Report 4450679-3 (Version None)
Quarter: 2004Q3

REPORT INFORMATION
  Report Type: 
  Country: None (occurrence: None)
  Receive Date: 20040913
  Receipt Date: 20040913
  Transmission Date: 20050211
  Serious: Yes (Disabling)
  Sender: FDA-Public Use
  Company Number: None

PATIENT
  Sex: Female
  Weight: 52.1637 kg

DRUGS (2)
  1. RISPERDAL [Suspect]
     Indication: PERVASIVE DEVELOPMENTAL DISORDER
     Dosage: 0.5 MG BY MOUTH TWICE A DAY
     Dates: start: 20020114
  2. REGLAN [Suspect]
     Indication: PROPHYLAXIS OF NAUSEA AND VOMITING
     Dosage: 10 MG BY MOUTH DAILY
     Dates: start: 20011021

REACTIONS (4)
  - DIFFICULTY IN WALKING [None]
  - DRUG INTERACTION [None]
  - DYSKINESIA [None]
  - GAIT DISTURBANCE [None]
